FAERS Safety Report 6965782-3 (Version None)
Quarter: 2010Q3

REPORT INFORMATION
  Report Type: 
  Country: None (occurrence: None)
  Receive Date: 20100903
  Receipt Date: 20100825
  Transmission Date: 20110219
  Serious: Yes (Hospitalization, Other)
  Sender: FDA-Public Use
  Company Number: US-GENZYME-THYM-1001806

PATIENT
  Age: 30 Year
  Sex: Female

DRUGS (1)
  1. THYMOGLOBULIN [Suspect]
     Indication: TYPE 1 DIABETES MELLITUS
     Dosage: UNK
     Route: 042
     Dates: start: 20100809, end: 20100812

REACTIONS (10)
  - CHEST DISCOMFORT [None]
  - FIBRIN D DIMER INCREASED [None]
  - HEADACHE [None]
  - LIVER FUNCTION TEST ABNORMAL [None]
  - MALAISE [None]
  - MYALGIA [None]
  - PALPITATIONS [None]
  - PRURITUS [None]
  - SERUM SICKNESS [None]
  - TACHYCARDIA [None]
